FAERS Safety Report 18224132 (Version 6)
Quarter: 2020Q4

REPORT INFORMATION
  Report Type: Spontaneous
  Country: US (occurrence: US)
  Receive Date: 20200902
  Receipt Date: 20201203
  Transmission Date: 20210113
  Serious: No
  Sender: FDA-Public Use
  Company Number: US-PFIZER INC-2020337382

PATIENT
  Age: 77 Year
  Sex: Female
  Weight: 61.69 kg

DRUGS (1)
  1. IBRANCE [Suspect]
     Active Substance: PALBOCICLIB
     Indication: NEOPLASM MALIGNANT
     Dosage: 100 MG, CYCLIC (TAKE ONCE DAILY FOR 21 DAYS AND OFF FOR WEEK)
     Dates: start: 202007, end: 2020

REACTIONS (4)
  - Decreased appetite [Unknown]
  - White blood cell count increased [Not Recovered/Not Resolved]
  - Neoplasm progression [Not Recovered/Not Resolved]
  - Eating disorder [Unknown]

NARRATIVE: CASE EVENT DATE: 2020
